FAERS Safety Report 6408475-3 (Version None)
Quarter: 2009Q4

REPORT INFORMATION
  Report Type: 
  Country: None (occurrence: None)
  Receive Date: 20091021
  Receipt Date: 20091013
  Transmission Date: 20100525
  Serious: Yes (Hospitalization)
  Sender: FDA-Public Use
  Company Number: BR-ASTRAZENECA-2009SE20316

PATIENT
  Age: 88 Year
  Sex: Female

DRUGS (13)
  1. NEXIUM [Suspect]
     Route: 048
     Dates: start: 20060101
  2. LASIX [Concomitant]
     Dates: end: 20090927
  3. MONOCORDIL [Concomitant]
     Dates: end: 20090927
  4. DIGOBAL [Concomitant]
  5. RENITEC [Concomitant]
  6. EXELOM [Concomitant]
     Dates: end: 20090927
  7. ZYLORIC [Concomitant]
     Dates: end: 20090927
  8. FOLIC ACID [Concomitant]
     Dates: end: 20090927
  9. MOTILIUM [Concomitant]
     Dates: end: 20090927
  10. ICTUS [Concomitant]
     Dates: end: 20090927
  11. ROXETIN [Concomitant]
     Dates: end: 20090927
  12. CENTRUM SILVER [Concomitant]
     Dates: end: 20090927
  13. GINKGO BILOBA [Concomitant]
     Dates: end: 20090927

REACTIONS (5)
  - BLOOD GLUCOSE INCREASED [None]
  - BLOOD PRESSURE INCREASED [None]
  - CONJUNCTIVITIS [None]
  - STOMATITIS [None]
  - WEIGHT DECREASED [None]
